FAERS Safety Report 4462445-3 (Version None)
Quarter: 2004Q3

REPORT INFORMATION
  Report Type: 
  Country: None (occurrence: None)
  Receive Date: 20040928
  Receipt Date: 20040916
  Transmission Date: 20050211
  Serious: Yes (Hospitalization)
  Sender: FDA-Public Use
  Company Number: FRP04000770

PATIENT
  Age: 75 Year
  Sex: Male

DRUGS (7)
  1. ACTONEL [Suspect]
     Dosage: 5 MG, DAILY, ORAL
     Route: 048
     Dates: end: 20040318
  2. AZATHIOPRINE [Suspect]
     Dosage: ORAL
     Route: 048
     Dates: start: 20040206, end: 20040318
  3. PLAQUENIL [Suspect]
     Dosage: ORAL
     Route: 048
     Dates: end: 20040318
  4. MOPRAL (OMEPRAZOLE) [Suspect]
     Dosage: 20 MG, DAILY, ORAL
     Route: 048
     Dates: end: 20040318
  5. PAROXETINE HCL [Suspect]
     Dosage: 20 MG, DAILY, ORAL
     Route: 048
     Dates: end: 20040318
  6. PREDNISONE [Concomitant]
  7. OSTRAM-VIT. D3 (CALCIUM PHOSPHATE) [Concomitant]

REACTIONS (1)
  - AGRANULOCYTOSIS [None]
